FAERS Safety Report 7999406-3 (Version None)
Quarter: 2011Q4

REPORT INFORMATION
  Report Type: 
  Country: None (occurrence: None)
  Receive Date: 20111221
  Receipt Date: 20111212
  Transmission Date: 20120403
  Serious: Yes (Hospitalization)
  Sender: FDA-Public Use
  Company Number: ZA-ELI_LILLY_AND_COMPANY-ZA201111003733

PATIENT
  Sex: Female

DRUGS (3)
  1. BYETTA [Suspect]
     Indication: DIABETES MELLITUS
     Dosage: 5 UG, QD
     Route: 058
     Dates: start: 20110919, end: 20110923
  2. BYETTA [Suspect]
     Dosage: UNK UNK, UNKNOWN
  3. BYETTA [Suspect]
     Dosage: 10 UG, UNKNOWN

REACTIONS (9)
  - HEADACHE [None]
  - RASH [None]
  - DIZZINESS [None]
  - NAUSEA [None]
  - WEIGHT DECREASED [None]
  - VOMITING [None]
  - DEHYDRATION [None]
  - DECREASED APPETITE [None]
  - PYREXIA [None]
